FAERS Safety Report 15592593 (Version 6)
Quarter: 2019Q3

REPORT INFORMATION
  Report Type: Report from Study
  Country: CO (occurrence: CO)
  Receive Date: 20181107
  Receipt Date: 20190731
  Transmission Date: 20191004
  Serious: Yes (Other)
  Sender: FDA-Public Use
  Company Number: CO-JNJFOC-20181043743

PATIENT
  Age: 52 Year
  Sex: Male
  Weight: 75 kg

DRUGS (3)
  1. STELARA [Suspect]
     Active Substance: USTEKINUMAB
     Route: 058
     Dates: start: 20181113
  2. STELARA [Suspect]
     Active Substance: USTEKINUMAB
     Route: 058
     Dates: start: 20180117
  3. STELARA [Suspect]
     Active Substance: USTEKINUMAB
     Indication: PSORIASIS
     Route: 058
     Dates: start: 20171217, end: 20180717

REACTIONS (13)
  - Pyrexia [Not Recovered/Not Resolved]
  - Osteoporosis [Unknown]
  - Hepatitis B [Unknown]
  - Spinal column injury [Not Recovered/Not Resolved]
  - Headache [Not Recovered/Not Resolved]
  - Vomiting [Not Recovered/Not Resolved]
  - Osteoarthritis [Unknown]
  - Psoriasis [Not Recovered/Not Resolved]
  - Psoriasis [Recovering/Resolving]
  - Oropharyngeal pain [Not Recovered/Not Resolved]
  - Diarrhoea [Not Recovered/Not Resolved]
  - Cough [Not Recovered/Not Resolved]
  - Drug ineffective [Unknown]

NARRATIVE: CASE EVENT DATE: 201810
